FAERS Safety Report 13068453 (Version 2)
Quarter: 2017Q4

REPORT INFORMATION
  Report Type: Spontaneous
  Country: DE (occurrence: DE)
  Receive Date: 20161228
  Receipt Date: 20171124
  Transmission Date: 20180320
  Serious: Yes (Death)
  Sender: FDA-Public Use
  Company Number: GXKR2016DE005902

PATIENT
  Age: 75 Year
  Sex: Male

DRUGS (11)
  1. OLANZAPIN [Suspect]
     Active Substance: OLANZAPINE
     Indication: PRODUCT USED FOR UNKNOWN INDICATION
     Dosage: 10 MG, QD
     Route: 065
     Dates: start: 201604, end: 20160528
  2. LORAZEPAM. [Concomitant]
     Active Substance: LORAZEPAM
     Indication: PRODUCT USED FOR UNKNOWN INDICATION
     Dosage: UNK
     Route: 065
     Dates: start: 201603, end: 20160414
  3. RISPERIDON [Concomitant]
     Active Substance: RISPERIDONE
     Indication: PRODUCT USED FOR UNKNOWN INDICATION
     Dosage: 20-20-40
     Route: 065
  4. HALDOL [Suspect]
     Active Substance: HALOPERIDOL
     Indication: PRODUCT USED FOR UNKNOWN INDICATION
     Dosage: 16 MG, (4 MG, 4 TIMES A DAY)
     Route: 065
     Dates: start: 201607, end: 20160723
  5. PIPAMPERONE [Concomitant]
     Active Substance: PIPAMPERONE
     Indication: PRODUCT USED FOR UNKNOWN INDICATION
     Route: 065
  6. OLANZAPIN [Suspect]
     Active Substance: OLANZAPINE
     Dosage: 5 MG, UNK
     Route: 065
     Dates: start: 20160915
  7. OLANZAPIN [Suspect]
     Active Substance: OLANZAPINE
     Dosage: 20 MG, UNK
     Route: 065
     Dates: end: 201606
  8. GLIANIMON [Concomitant]
     Active Substance: BENPERIDOL
     Indication: PRODUCT USED FOR UNKNOWN INDICATION
     Dosage: UNK
     Route: 065
     Dates: start: 201603, end: 20160414
  9. QUETIAPIN [Concomitant]
     Active Substance: QUETIAPINE
     Indication: PRODUCT USED FOR UNKNOWN INDICATION
     Route: 065
  10. OLANZAPIN [Suspect]
     Active Substance: OLANZAPINE
     Dosage: 10 MG, UNK
     Route: 065
  11. OLANZAPIN [Suspect]
     Active Substance: OLANZAPINE
     Dosage: 20 MG, UNK
     Route: 065
     Dates: start: 20160723, end: 20160915

REACTIONS (15)
  - Dry mouth [Fatal]
  - Eye movement disorder [Fatal]
  - Cough [Fatal]
  - Gait disturbance [Fatal]
  - Muscle rigidity [Fatal]
  - Neuroleptic malignant syndrome [Fatal]
  - Cerebellar syndrome [Fatal]
  - Dysarthria [Fatal]
  - Sepsis [Fatal]
  - Body temperature increased [Fatal]
  - Pneumonia aspiration [Fatal]
  - General physical health deterioration [Fatal]
  - Dysphagia [Fatal]
  - Neuroleptic malignant syndrome [Fatal]
  - Bradyphrenia [Fatal]

NARRATIVE: CASE EVENT DATE: 20160414
